FAERS Safety Report 18009397 (Version 1)
Quarter: 2020Q3

REPORT INFORMATION
  Report Type: Spontaneous
  Country: DE (occurrence: DE)
  Receive Date: 20200710
  Receipt Date: 20200710
  Transmission Date: 20201103
  Serious: Yes (Hospitalization)
  Sender: FDA-Public Use
  Company Number: DE-JNJFOC-20200701688

PATIENT
  Age: 79 Year
  Sex: Female
  Weight: 58 kg

DRUGS (1)
  1. DARZALEX [Suspect]
     Active Substance: DARATUMUMAB
     Indication: PLASMA CELL MYELOMA
     Route: 042
     Dates: start: 20200616, end: 20200617

REACTIONS (4)
  - Pyrexia [Recovered/Resolved]
  - Electrocardiogram abnormal [Recovered/Resolved]
  - Haemolysis [Recovered/Resolved]
  - Chills [Recovered/Resolved]

NARRATIVE: CASE EVENT DATE: 20200616
